FAERS Safety Report 13519226 (Version 2)
Quarter: 2017Q2

REPORT INFORMATION
  Report Type: Spontaneous
  Country: JP (occurrence: JP)
  Receive Date: 20170505
  Receipt Date: 20170509
  Transmission Date: 20170830
  Serious: Yes (Hospitalization, Other)
  Sender: FDA-Public Use
  Company Number: JP-009507513-1705JPN002168

PATIENT
  Age: 5 Month
  Sex: Female

DRUGS (6)
  1. ROCEPHIN [Suspect]
     Active Substance: CEFTRIAXONE SODIUM
     Indication: HAEMOPHILUS INFECTION
  2. CARBENIN [Suspect]
     Active Substance: BETAMIPRON\PANIPENEM
     Indication: HAEMOPHILUS INFECTION
  3. DEXAMETHASONE. [Suspect]
     Active Substance: DEXAMETHASONE
     Indication: PROPHYLAXIS
     Dosage: 0.15 MG/KG, EVERY 6 HOURS; FOR 4 DAYS BEFORE THE INITIAL DOSES OF THE ANTIBIOTICS. (0.15 MG/KG)
     Route: 065
  4. CARBENIN [Suspect]
     Active Substance: BETAMIPRON\PANIPENEM
     Indication: MENINGITIS BACTERIAL
     Dosage: UNK
     Route: 065
  5. ROCEPHIN [Suspect]
     Active Substance: CEFTRIAXONE SODIUM
     Indication: MENINGITIS BACTERIAL
     Dosage: UNK
     Route: 065
  6. GASTER [Concomitant]
     Active Substance: FAMOTIDINE
     Indication: PRODUCT USED FOR UNKNOWN INDICATION
     Dosage: 1 MG/KG (1 MG/KG)
     Route: 065

REACTIONS (3)
  - Subdural hygroma [Unknown]
  - Brain abscess [Unknown]
  - Off label use [Unknown]
